FAERS Safety Report 18787442 (Version 1)
Quarter: 2021Q1

REPORT INFORMATION
  Report Type: Other
  Country: US (occurrence: US)
  Receive Date: 20210125
  Receipt Date: 20210125
  Transmission Date: 20210419
  Serious: No
  Sender: FDA-Public Use
  Company Number: US-ROCHE-2674288

PATIENT
  Age: 64 Year
  Sex: Male

DRUGS (15)
  1. PREDNISONE. [Concomitant]
     Active Substance: PREDNISONE
     Indication: ADRENAL INSUFFICIENCY
     Dosage: MAINTENANCE
     Route: 048
  2. INFLIXIMAB [Concomitant]
     Active Substance: INFLIXIMAB
     Indication: PYODERMA GANGRENOSUM
  3. RIVAROXABAN [Concomitant]
     Active Substance: RIVAROXABAN
     Indication: ATRIAL FIBRILLATION
  4. METHYLPREDNISOLONE. [Concomitant]
     Active Substance: METHYLPREDNISOLONE
     Route: 042
  5. PREDNISONE. [Concomitant]
     Active Substance: PREDNISONE
     Route: 048
  6. TACROLIMUS. [Concomitant]
     Active Substance: TACROLIMUS
     Indication: PYODERMA GANGRENOSUM
     Dosage: DIVIDED INTO 2 DOSES
     Route: 048
  7. PREDNISONE. [Concomitant]
     Active Substance: PREDNISONE
     Indication: PYODERMA GANGRENOSUM
     Route: 048
  8. DAPSONE. [Concomitant]
     Active Substance: DAPSONE
     Indication: PYODERMA GANGRENOSUM
  9. CYCLOSPORINE. [Concomitant]
     Active Substance: CYCLOSPORINE
     Indication: PYODERMA GANGRENOSUM
  10. AZATHIOPRINE. [Concomitant]
     Active Substance: AZATHIOPRINE
     Indication: PYODERMA GANGRENOSUM
  11. ADALIMUMAB [Concomitant]
     Active Substance: ADALIMUMAB
     Indication: PYODERMA GANGRENOSUM
  12. RITUXIMAB. [Suspect]
     Active Substance: RITUXIMAB
     Indication: PYODERMA GANGRENOSUM
     Dosage: A SERIES OF 4 INFUSIONS
     Route: 041
  13. METHYLPREDNISOLONE. [Concomitant]
     Active Substance: METHYLPREDNISOLONE
     Indication: PYODERMA GANGRENOSUM
     Route: 042
  14. TOFACITINIB [Concomitant]
     Active Substance: TOFACITINIB
     Indication: PYODERMA GANGRENOSUM
     Route: 048
  15. TOFACITINIB [Concomitant]
     Active Substance: TOFACITINIB
     Route: 048

REACTIONS (1)
  - Drug eruption [Unknown]
